FAERS Safety Report 15296669 (Version 2)
Quarter: 2018Q3

REPORT INFORMATION
  Report Type: Report from Study
  Country: GB (occurrence: GB)
  Receive Date: 20180820
  Receipt Date: 20180831
  Transmission Date: 20181010
  Serious: Yes (Hospitalization)
  Sender: FDA-Public Use
  Company Number: GB-PFIZER INC-2018326708

PATIENT
  Age: 71 Year
  Sex: Female
  Weight: 57 kg

DRUGS (11)
  1. IPRATROPIUM BROMIDE. [Concomitant]
     Active Substance: IPRATROPIUM BROMIDE
     Indication: ASTHMA
     Dosage: 20 UG/ACTUATION, 2X/DAY, 2 PUFFS BD
     Route: 055
     Dates: start: 1980
  2. SALBUTAMOL [Concomitant]
     Active Substance: ALBUTEROL
     Indication: ASTHMA
     Dosage: 2 PUFFS AS NEEDED
     Route: 055
     Dates: start: 1980
  3. LEVOTHYROXINE. [Concomitant]
     Active Substance: LEVOTHYROXINE
     Indication: HYPOTHYROIDISM
     Dosage: 25 UG, 1X/DAY
     Route: 048
     Dates: start: 20180210
  4. DALACIN /00166002/ [Concomitant]
     Active Substance: CLINDAMYCIN HYDROCHLORIDE
     Indication: VAGINAL INFECTION
     Dosage: 1 APPLICATION, 1X/DAY
     Route: 061
     Dates: start: 20180726, end: 20180727
  5. AVELUMAB [Suspect]
     Active Substance: AVELUMAB
     Indication: RENAL CELL CARCINOMA
     Dosage: 546 MG, EVERY 2 WEEKS
     Route: 042
     Dates: start: 20171102, end: 20180601
  6. AMLODIPINE [Concomitant]
     Active Substance: AMLODIPINE BESYLATE
     Indication: HYPERTENSION
     Dosage: 10 MG, 1X/DAY
     Route: 048
     Dates: start: 2013, end: 20180810
  7. OENOTHERA BIENNIS OIL [Concomitant]
     Indication: NIGHT SWEATS
     Dosage: 1 TABLET, 1X/DAY
     Route: 048
     Dates: start: 20180428, end: 20180608
  8. CO?AMOXICLAV /00756801/ [Concomitant]
     Active Substance: AMOXICILLIN\CLAVULANIC ACID
     Indication: VAGINAL INFECTION
     Dosage: 625 MG, 3X/DAY
     Route: 048
     Dates: start: 20180803, end: 20180809
  9. NASEPTIN [Concomitant]
     Active Substance: CHLORHEXIDINE HYDROCHLORIDE\NEOMYCIN SULFATE
     Indication: MUCOSAL INFLAMMATION
     Dosage: 1 DOSE, 1X/DAY
     Route: 061
     Dates: start: 20171212
  10. E45 [Concomitant]
     Active Substance: LANOLIN\LIGHT MINERAL OIL\PARAFFIN
     Indication: PRURITUS
     Dosage: 1 DOSE, AS NEEDED
     Route: 061
     Dates: start: 2018
  11. INLYTA [Suspect]
     Active Substance: AXITINIB
     Indication: RENAL CELL CARCINOMA
     Dosage: 5 MG, 2X/DAY CONTINUEOUS
     Route: 048
     Dates: start: 20171102

REACTIONS (1)
  - Sepsis [Recovered/Resolved]

NARRATIVE: CASE EVENT DATE: 20180810
